FAERS Safety Report 12560285 (Version 1)
Quarter: 2016Q3

REPORT INFORMATION
  Report Type: Spontaneous
  Country: US (occurrence: US)
  Receive Date: 20160715
  Receipt Date: 20160715
  Transmission Date: 20161109
  Serious: No
  Sender: FDA-Public Use
  Company Number: US-JNJFOC-20160624425

PATIENT
  Age: 61 Year
  Sex: Female
  Weight: 67.13 kg

DRUGS (2)
  1. WOMENS ROGAINE UNSCENTED [Suspect]
     Active Substance: MINOXIDIL
     Route: 061
  2. WOMENS ROGAINE UNSCENTED [Suspect]
     Active Substance: MINOXIDIL
     Indication: ALOPECIA
     Dosage: FULL CAPFUL, DISPENSED INTO PALM OF HAIR, ONTO SIDES CROWN AND TOP OF HEAD
     Route: 061

REACTIONS (4)
  - Product packaging issue [Unknown]
  - Off label use [Not Recovered/Not Resolved]
  - Hair colour changes [Not Recovered/Not Resolved]
  - Overdose [Not Recovered/Not Resolved]
